FAERS Safety Report 5623477-2 (Version None)
Quarter: 2008Q1

REPORT INFORMATION
  Report Type: 
  Country: None (occurrence: None)
  Receive Date: 20080212
  Receipt Date: 20080131
  Transmission Date: 20080703
  Serious: Yes (Other)
  Sender: FDA-Public Use
  Company Number: GB-PFIZER INC-2008010558

PATIENT
  Age: 50 Year
  Sex: Male

DRUGS (8)
  1. CHANTIX [Suspect]
     Indication: SMOKING CESSATION THERAPY
     Route: 048
     Dates: start: 20071101, end: 20071201
  2. DOXAZOSIN MESYLATE [Concomitant]
     Indication: HYPERTENSION
     Route: 048
  3. ENALAPRIL MALEATE [Concomitant]
     Indication: HYPERTENSION
     Route: 048
  4. FELODIPINE [Concomitant]
     Indication: HYPERTENSION
     Route: 048
  5. FUROSEMIDE [Concomitant]
     Indication: HYPERTENSION
     Route: 048
  6. FUROSEMIDE [Concomitant]
     Indication: RENAL IMPAIRMENT
  7. OMEPRAZOLE [Concomitant]
     Indication: DYSPEPSIA
     Route: 048
  8. SIMVASTATIN [Concomitant]
     Route: 048

REACTIONS (3)
  - AGGRESSION [None]
  - PERSONALITY CHANGE [None]
  - SEDATION [None]
